FAERS Safety Report 4942045-9 (Version None)
Quarter: 2006Q1

REPORT INFORMATION
  Report Type: 
  Country: None (occurrence: None)
  Receive Date: 20060313
  Receipt Date: 20050502
  Transmission Date: 20060701
  Serious: No
  Sender: FDA-Public Use
  Company Number: US-GLAXOSMITHKLINE-A0556839A

PATIENT
  Age: 66 Year
  Sex: Female

DRUGS (1)
  1. NICORETTE (MINT) [Suspect]
     Dates: end: 20050501

REACTIONS (4)
  - GLOSSODYNIA [None]
  - ORAL DISCOMFORT [None]
  - ORAL PAIN [None]
  - TONGUE DISORDER [None]
